FAERS Safety Report 7424948-9 (Version None)
Quarter: 2011Q2

REPORT INFORMATION
  Report Type: 
  Country: None (occurrence: None)
  Receive Date: 20110419
  Receipt Date: 20110411
  Transmission Date: 20111010
  Serious: Yes (Other)
  Sender: FDA-Public Use
  Company Number: PHHY2010DE82327

PATIENT
  Sex: Male

DRUGS (6)
  1. TACROLIMUS [Concomitant]
     Dosage: 1.4 MG PER DAY
     Dates: start: 20101120
  2. PREDNISOLONE [Concomitant]
     Dosage: 2 MG
     Route: 048
     Dates: start: 20101125
  3. SANDIMMUNE [Suspect]
     Indication: LIVER TRANSPLANT
     Dosage: 32 MG, BID
     Route: 048
     Dates: start: 20101026, end: 20101120
  4. ACETYLSALICYLIC ACID SRT [Concomitant]
     Dosage: 50 MG
  5. VALGANCICLOVIR [Concomitant]
     Dosage: 140 MG
     Route: 048
     Dates: start: 20101109
  6. SIMULECT [Concomitant]
     Dosage: 10 MG
     Route: 042
     Dates: start: 20101126

REACTIONS (6)
  - DRUG INEFFECTIVE [None]
  - CHOLESTASIS [None]
  - DIARRHOEA [None]
  - GASTROINTESTINAL TRACT IRRITATION [None]
  - IMMUNOSUPPRESSANT DRUG LEVEL DECREASED [None]
  - LIVER TRANSPLANT REJECTION [None]
